FAERS Safety Report 9365291 (Version 4)
Quarter: 2013Q4

REPORT INFORMATION
  Report Type: Spontaneous
  Country: JP (occurrence: JP)
  Receive Date: 20130625
  Receipt Date: 20131216
  Transmission Date: 20140711
  Serious: Yes (Hospitalization)
  Sender: FDA-Public Use
  Company Number: JP-ROCHE-1239878

PATIENT
  Age: 59 Year
  Sex: Female
  Weight: 48 kg

DRUGS (10)
  1. XELODA [Suspect]
     Indication: COLON CANCER METASTATIC
     Dosage: 2 WEEKS ADMINISTRATION FOLLOWED BY 1 WEEK REST
     Route: 048
     Dates: start: 20121107, end: 20130430
  2. ELPLAT [Concomitant]
     Indication: COLON CANCER METASTATIC
     Route: 041
     Dates: start: 20121107, end: 20121107
  3. ELPLAT [Concomitant]
     Indication: COLON CANCER METASTATIC
     Route: 041
     Dates: start: 20121128, end: 20121128
  4. ELPLAT [Concomitant]
     Indication: COLON CANCER METASTATIC
     Route: 041
     Dates: start: 20121219, end: 20121219
  5. ELPLAT [Concomitant]
     Indication: COLON CANCER METASTATIC
     Route: 041
     Dates: start: 20130206, end: 20130206
  6. ELPLAT [Concomitant]
     Indication: COLON CANCER METASTATIC
     Route: 041
     Dates: start: 20130227, end: 20130227
  7. ELPLAT [Concomitant]
     Indication: COLON CANCER METASTATIC
     Route: 041
     Dates: start: 20130327, end: 20130327
  8. ELPLAT [Concomitant]
     Indication: COLON CANCER METASTATIC
     Route: 041
     Dates: start: 20130417, end: 20130417
  9. BASEN (JAPAN) [Concomitant]
     Indication: DIABETES MELLITUS
     Route: 048
     Dates: start: 20121008
  10. JANUVIA [Concomitant]
     Indication: DIABETES MELLITUS
     Route: 048
     Dates: start: 20130130

REACTIONS (2)
  - Hyperammonaemic encephalopathy [Recovered/Resolved]
  - Decreased appetite [Recovered/Resolved]
